FAERS Safety Report 14747893 (Version 2)
Quarter: 2018Q3

REPORT INFORMATION
  Report Type: Report from Study
  Country: FR (occurrence: FR)
  Receive Date: 20180411
  Receipt Date: 20180907
  Transmission Date: 20181010
  Serious: Yes (Other)
  Sender: FDA-Public Use
  Company Number: FR-EXELIXIS-XL18417010556

PATIENT
  Age: 16 Year

DRUGS (1)
  1. XL184 [Suspect]
     Active Substance: CABOZANTINIB
     Indication: OSTEOSARCOMA
     Dosage: 60 MG, QD
     Route: 048
     Dates: start: 20160415, end: 20160722

REACTIONS (4)
  - Visual impairment [Recovered/Resolved]
  - Pneumothorax [Unknown]
  - Vision blurred [Recovered/Resolved]
  - Headache [Recovered/Resolved]

NARRATIVE: CASE EVENT DATE: 20160619
